FAERS Safety Report 15941615 (Version 1)
Quarter: 2019Q1

REPORT INFORMATION
  Report Type: Spontaneous
  Country: US (occurrence: US)
  Receive Date: 20190208
  Receipt Date: 20190208
  Transmission Date: 20190417
  Serious: Yes (Other)
  Sender: FDA-Public Use
  Company Number: None

PATIENT
  Age: 56 Year
  Sex: Female
  Weight: 52.65 kg

DRUGS (1)
  1. EQUATE STOMACH RELIEF [Suspect]
     Active Substance: BISMUTH SUBSALICYLATE
     Indication: VOMITING
     Dosage: ?          OTHER STRENGTH:REGULAR;QUANTITY:1 TABLET(S);?
     Dates: start: 20190207, end: 20190208

REACTIONS (2)
  - Product formulation issue [None]
  - Malaise [None]

NARRATIVE: CASE EVENT DATE: 20190208
